FAERS Safety Report 19470387 (Version 1)
Quarter: 2021Q2

REPORT INFORMATION
  Report Type: Spontaneous
  Country: RO (occurrence: RO)
  Receive Date: 20210629
  Receipt Date: 20210629
  Transmission Date: 20210717
  Serious: Yes (Life-Threatening, Hospitalization, Other)
  Sender: FDA-Public Use
  Company Number: RO-AUROBINDO-AUR-APL-2021-027247

PATIENT
  Age: 68 Year
  Sex: Male

DRUGS (3)
  1. CAPECITABINE. [Suspect]
     Active Substance: CAPECITABINE
     Indication: ADENOCARCINOMA OF COLON
     Dosage: UNK
     Route: 065
  2. OCTREOTIDE. [Suspect]
     Active Substance: OCTREOTIDE
     Indication: DIARRHOEA
     Dosage: UNK
     Route: 065
  3. LOPERAMIDE [Suspect]
     Active Substance: LOPERAMIDE
     Indication: DIARRHOEA
     Dosage: UNK
     Route: 065

REACTIONS (2)
  - Terminal ileitis [Recovered/Resolved]
  - Drug ineffective [Recovered/Resolved]
